FAERS Safety Report 8108886 (Version 3)
Quarter: 2014Q3

REPORT INFORMATION
  Report Type: Spontaneous
  Country: CN (occurrence: CN)
  Receive Date: 20110826
  Receipt Date: 20140707
  Transmission Date: 20150326
  Serious: Yes (Other)
  Sender: FDA-Public Use
  Company Number: CN-JNJFOC-20110809399

PATIENT
  Age: 43 Year
  Sex: Female
  Weight: 65 kg

DRUGS (9)
  1. RISPERDAL [Suspect]
     Active Substance: RISPERIDONE
     Indication: DIZZINESS
     Dosage: EVERY DAY BEFORE SLEEP
     Route: 048
     Dates: start: 20110725, end: 201111
  2. ALPRAZOLAM. [Suspect]
     Active Substance: ALPRAZOLAM
     Indication: ASTHENIA
     Route: 048
     Dates: start: 20110725, end: 201111
  3. ALPRAZOLAM. [Suspect]
     Active Substance: ALPRAZOLAM
     Indication: HEADACHE
     Route: 048
     Dates: start: 20110725, end: 201111
  4. RISPERDAL [Suspect]
     Active Substance: RISPERIDONE
     Indication: HEADACHE
     Dosage: EVERY DAY BEFORE SLEEP
     Route: 048
     Dates: start: 20110725, end: 201111
  5. VENLAFAXINE [Suspect]
     Active Substance: VENLAFAXINE HYDROCHLORIDE
     Indication: HEADACHE
     Route: 048
     Dates: start: 20110725, end: 201111
  6. VENLAFAXINE [Suspect]
     Active Substance: VENLAFAXINE HYDROCHLORIDE
     Indication: DIZZINESS
     Route: 048
     Dates: start: 20110725, end: 201111
  7. VENLAFAXINE [Suspect]
     Active Substance: VENLAFAXINE HYDROCHLORIDE
     Indication: ASTHENIA
     Route: 048
     Dates: start: 20110725, end: 201111
  8. RISPERDAL [Suspect]
     Active Substance: RISPERIDONE
     Indication: ASTHENIA
     Dosage: EVERY DAY BEFORE SLEEP
     Route: 048
     Dates: start: 20110725, end: 201111
  9. ALPRAZOLAM. [Suspect]
     Active Substance: ALPRAZOLAM
     Indication: DIZZINESS
     Route: 048
     Dates: start: 20110725, end: 201111

REACTIONS (10)
  - Urinary incontinence [Not Recovered/Not Resolved]
  - Tooth loss [Not Recovered/Not Resolved]
  - Dysuria [Not Recovered/Not Resolved]
  - Toothache [Not Recovered/Not Resolved]
  - Dry mouth [Not Recovered/Not Resolved]
  - Tooth disorder [Not Recovered/Not Resolved]
  - Lacrimation increased [Not Recovered/Not Resolved]
  - Fear [Not Recovered/Not Resolved]
  - Insomnia [Not Recovered/Not Resolved]
  - Dyspnoea [Not Recovered/Not Resolved]

NARRATIVE: CASE EVENT DATE: 20110726
